FAERS Safety Report 11785904 (Version 1)
Quarter: 2015Q4

REPORT INFORMATION
  Report Type: Spontaneous
  Country: IT (occurrence: IT)
  Receive Date: 20151130
  Receipt Date: 20151130
  Transmission Date: 20160305
  Serious: Yes (Other)
  Sender: FDA-Public Use
  Company Number: IT-TEVA-611163ACC

PATIENT
  Age: 18 Month
  Sex: Male

DRUGS (1)
  1. AMOXICILLIN W/CLAVULANIC ACID [Suspect]
     Active Substance: AMOXICILLIN\CLAVULANIC ACID
     Indication: COUGH

REACTIONS (4)
  - Diarrhoea [Unknown]
  - Hypersensitivity [Unknown]
  - Urticaria [Unknown]
  - Autism [Unknown]
